FAERS Safety Report 11128704 (Version 1)
Quarter: 2015Q2

REPORT INFORMATION
  Report Type: Spontaneous
  Country: DE (occurrence: DE)
  Receive Date: 20150521
  Receipt Date: 20150521
  Transmission Date: 20150821
  Serious: Yes (Hospitalization)
  Sender: FDA-Public Use
  Company Number: DE-SA-2015SA066700

PATIENT
  Sex: Female
  Weight: 70 kg

DRUGS (6)
  1. PANTOPRAZOLE [Concomitant]
     Active Substance: PANTOPRAZOLE SODIUM
     Indication: PROPHYLAXIS
     Route: 048
     Dates: start: 20100115
  2. PREDNISOLONE. [Concomitant]
     Active Substance: PREDNISOLONE
     Route: 048
     Dates: start: 20100115
  3. ENBREL [Suspect]
     Active Substance: ETANERCEPT
     Indication: POLYARTHRITIS
     Route: 065
     Dates: start: 20100115
  4. ENBREL [Suspect]
     Active Substance: ETANERCEPT
     Indication: POLYARTHRITIS
     Route: 065
  5. ARAVA [Suspect]
     Active Substance: LEFLUNOMIDE
     Indication: POLYARTHRITIS
     Route: 048
     Dates: start: 20091101, end: 201004
  6. ARCOXIA [Concomitant]
     Active Substance: ETORICOXIB
     Dates: start: 200912

REACTIONS (3)
  - Impaired healing [Recovered/Resolved]
  - Osteitis [Recovered/Resolved]
  - Alveolar osteitis [Recovered/Resolved]

NARRATIVE: CASE EVENT DATE: 20100406
